FAERS Safety Report 10151308 (Version 1)
Quarter: 2014Q2

REPORT INFORMATION
  Report Type: Spontaneous
  Country: US (occurrence: US)
  Receive Date: 20140502
  Receipt Date: 20140502
  Transmission Date: 20141212
  Serious: No
  Sender: FDA-Public Use
  Company Number: US-ASTRAZENECA-2013SE66499

PATIENT
  Sex: 0

DRUGS (4)
  1. PRILOSEC OTC [Suspect]
     Route: 048
     Dates: start: 20130801, end: 20130814
  2. VITAMINS [Concomitant]
     Dosage: UNKNOWN
  3. AMLODIPINE [Concomitant]
     Dosage: UNKNOWN
  4. BENAZEPRIL [Concomitant]
     Dosage: UNKNOWN

REACTIONS (1)
  - Vitamin D decreased [Not Recovered/Not Resolved]
